FAERS Safety Report 4277604-2 (Version None)
Quarter: 2004Q1

REPORT INFORMATION
  Report Type: 
  Country: None (occurrence: None)
  Receive Date: 20040121
  Receipt Date: 20030926
  Transmission Date: 20041129
  Serious: Yes (Hospitalization)
  Sender: FDA-Public Use
  Company Number: PHEH2003US08821

PATIENT
  Age: 61 Year
  Sex: Female
  Weight: 84.369 kg

DRUGS (1)
  1. VISUDYNE [Suspect]
     Indication: MACULAR DEGENERATION
     Dosage: 5.7 ONCE IV
     Route: 042
     Dates: start: 20030924, end: 20030924

REACTIONS (6)
  - CELLULITIS [None]
  - CONTUSION [None]
  - ERYTHEMA [None]
  - EXTRAVASATION [None]
  - OEDEMA PERIPHERAL [None]
  - PAIN [None]
